FAERS Safety Report 9284276 (Version 2)
Quarter: 2013Q2

REPORT INFORMATION
  Report Type: Spontaneous
  Country: FR (occurrence: FR)
  Receive Date: 20130510
  Receipt Date: 20130618
  Transmission Date: 20140414
  Serious: Yes (Hospitalization)
  Sender: FDA-Public Use
  Company Number: FR-BAYER-2013-058569

PATIENT
  Age: 48 Year
  Sex: Female

DRUGS (1)
  1. JASMINE [Suspect]
     Indication: ORAL CONTRACEPTION
     Dosage: UNK
     Route: 048
     Dates: start: 2010, end: 201303

REACTIONS (1)
  - Muscle spasms [Recovered/Resolved]
